FAERS Safety Report 5392824-1 (Version None)
Quarter: 2007Q3

REPORT INFORMATION
  Report Type: 
  Country: None (occurrence: None)
  Receive Date: 20070718
  Receipt Date: 20070704
  Transmission Date: 20080115
  Serious: Yes (Hospitalization)
  Sender: FDA-Public Use
  Company Number: A-JP2006-13828

PATIENT
  Age: 68 Year
  Sex: Female

DRUGS (11)
  1. TRACLEER [Suspect]
     Indication: PULMONARY HYPERTENSION
     Dosage: 31.25 MG, TID, ORAL; 62.5 MG, BID, ORAL; 15.6 MG, BID, ORAL; 31.25 MG, BID, ORAL; 31.25 MG, TID,ORAL
     Route: 048
     Dates: start: 20060731, end: 20060802
  2. TRACLEER [Suspect]
     Indication: PULMONARY HYPERTENSION
     Dosage: 31.25 MG, TID, ORAL; 62.5 MG, BID, ORAL; 15.6 MG, BID, ORAL; 31.25 MG, BID, ORAL; 31.25 MG, TID,ORAL
     Route: 048
     Dates: start: 20060803, end: 20060817
  3. TRACLEER [Suspect]
     Indication: PULMONARY HYPERTENSION
     Dosage: 31.25 MG, TID, ORAL; 62.5 MG, BID, ORAL; 15.6 MG, BID, ORAL; 31.25 MG, BID, ORAL; 31.25 MG, TID,ORAL
     Route: 048
     Dates: start: 20060818, end: 20060904
  4. TRACLEER [Suspect]
     Indication: PULMONARY HYPERTENSION
     Dosage: 31.25 MG, TID, ORAL; 62.5 MG, BID, ORAL; 15.6 MG, BID, ORAL; 31.25 MG, BID, ORAL; 31.25 MG, TID,ORAL
     Route: 048
     Dates: start: 20060905, end: 20061005
  5. TRACLEER [Suspect]
     Indication: PULMONARY HYPERTENSION
     Dosage: 31.25 MG, TID, ORAL; 62.5 MG, BID, ORAL; 15.6 MG, BID, ORAL; 31.25 MG, BID, ORAL; 31.25 MG, TID,ORAL
     Route: 048
     Dates: start: 20061006
  6. WARFARIN SODIUM [Suspect]
  7. BERAPROST SODIUM(BERAPROST SODIUM) [Suspect]
  8. METILDIGOXIN (METILDIGOXIN) [Concomitant]
  9. FUROSEMIDE [Concomitant]
  10. ECABET (ECABET) [Concomitant]
  11. ALLOPURINOL [Concomitant]

REACTIONS (3)
  - HAEMOPTYSIS [None]
  - PROTHROMBIN TIME PROLONGED [None]
  - PULMONARY HAEMORRHAGE [None]
